FAERS Safety Report 4902855-0 (Version None)
Quarter: 2006Q1

REPORT INFORMATION
  Report Type: 
  Country: None (occurrence: None)
  Receive Date: 20060207
  Receipt Date: 20001207
  Transmission Date: 20060701
  Serious: Yes (Hospitalization)
  Sender: FDA-Public Use
  Company Number: UG-2000-BP-02250

PATIENT
  Sex: Female

DRUGS (1)
  1. VIRAMUNE [Suspect]
     Indication: ACQUIRED IMMUNODEFICIENCY SYNDROME
     Route: 048
     Dates: start: 20001109, end: 20001109

REACTIONS (7)
  - HEAT RASH [None]
  - IRRITABILITY [None]
  - PYREXIA [None]
  - RASH [None]
  - SEBACEOUS HYPERPLASIA [None]
  - SEPSIS [None]
  - SKIN DISCOLOURATION [None]
